FAERS Safety Report 7630803-1 (Version None)
Quarter: 2011Q3

REPORT INFORMATION
  Report Type: 
  Country: None (occurrence: None)
  Receive Date: 20110723
  Receipt Date: 20110721
  Transmission Date: 20111222
  Serious: Yes (Death)
  Sender: FDA-Public Use
  Company Number: GB-ABBOTT-11P-167-0840835-00

PATIENT
  Sex: Female

DRUGS (1)
  1. HUMIRA [Suspect]
     Indication: RHEUMATOID ARTHRITIS
     Dosage: 1 Q 2 WEEKS. LAST INFORMATION 20-NOV-09
     Route: 058
     Dates: start: 20070705

REACTIONS (1)
  - LUNG CANCER METASTATIC [None]
